FAERS Safety Report 11542445 (Version 1)
Quarter: 2015Q3

REPORT INFORMATION
  Report Type: Spontaneous
  Country: DE (occurrence: DE)
  Receive Date: 20150923
  Receipt Date: 20150923
  Transmission Date: 20151125
  Serious: Yes (Other)
  Sender: FDA-Public Use
  Company Number: DE-009507513-1509DEU009923

PATIENT
  Sex: Male
  Weight: 87 kg

DRUGS (4)
  1. SIMVASTATIN. [Suspect]
     Active Substance: SIMVASTATIN
     Dosage: ^40 MG MILLIGRAM (EVERY DAY)^ (40 MG MILLIGRAM, 1 IN 1 DAY)
     Route: 048
     Dates: start: 2013, end: 2015
  2. ATORVASTATIN [Suspect]
     Active Substance: ATORVASTATIN
     Dosage: ^40 MG MILLIGRAM (EVERY DAY)^ (40 MG MILLIGRAM, 1 IN 1 DAY)
     Route: 048
     Dates: start: 2013, end: 2015
  3. ATORVASTATIN [Suspect]
     Active Substance: ATORVASTATIN
     Dosage: ^20 MG MILLIGRAM (EVERY DAY)^ (20 MG MILLIGRAM, 1 IN 1 DAY)
     Route: 048
     Dates: start: 2013, end: 2015
  4. PRAVASTATIN [Suspect]
     Active Substance: PRAVASTATIN\PRAVASTATIN SODIUM
     Dosage: ^40 MG MILLIGRAM (EVERY DAY)^ (40 MG MILLIGRAM, 1 IN 1 DAY)
     Route: 048
     Dates: start: 2013, end: 2015

REACTIONS (2)
  - Muscle rupture [Recovering/Resolving]
  - Blood creatine phosphokinase increased [Recovering/Resolving]
